FAERS Safety Report 13884130 (Version 1)
Quarter: 2017Q3

REPORT INFORMATION
  Report Type: Spontaneous
  Country: US (occurrence: US)
  Receive Date: 20170820
  Receipt Date: 20170820
  Transmission Date: 20171127
  Serious: Yes (Life-Threatening)
  Sender: FDA-Public Use
  Company Number: None

PATIENT
  Age: 41 Year
  Sex: Male
  Weight: 103.5 kg

DRUGS (6)
  1. EPINEPHRINE INJECTION, USP [Suspect]
     Active Substance: EPINEPHRINE
     Indication: ANAPHYLAXIS PROPHYLAXIS
     Dosage: ?          QUANTITY:1 INJECTION AS NEEDED INTRAMUSCULAR?
     Route: 030
     Dates: start: 20170819, end: 20170819
  2. LISINOPRIL (PRINIVIL) [Concomitant]
  3. VENTOLIN HFA [Concomitant]
     Active Substance: ALBUTEROL SULFATE
  4. NORVASC [Concomitant]
     Active Substance: AMLODIPINE BESYLATE
  5. TRICOR [Concomitant]
     Active Substance: FENOFIBRATE
  6. ZYRTEC ALLERGY OTC (CETIRIZINE HCL) [Concomitant]

REACTIONS (2)
  - Anaphylactic reaction [None]
  - Product contamination chemical [None]

NARRATIVE: CASE EVENT DATE: 20170819
